FAERS Safety Report 4573071-X (Version None)
Quarter: 2005Q1

REPORT INFORMATION
  Report Type: 
  Country: None (occurrence: None)
  Receive Date: 20050204
  Receipt Date: 20050124
  Transmission Date: 20050727
  Serious: No
  Sender: FDA-Public Use
  Company Number: 05H-083-0288103-00

PATIENT

DRUGS (4)
  1. LEUCOVORIN CALCIUM [Suspect]
     Indication: COLORECTAL CANCER METASTATIC
     Dosage: 200 MG/M2, EVERY TWO WEEKS, INTRAVENOUS INFUSION; DAY 1
     Route: 042
  2. IRINOTECAN [Suspect]
     Indication: COLORECTAL CANCER METASTATIC
     Dosage: 165 MG/M2, EVERY 2 WEEKS, INTRAVENOUS; DAY 1
     Route: 042
  3. OXALIPLATIN [Suspect]
     Indication: COLORECTAL CANCER METASTATIC
     Dosage: 85 MG/M2, EVERY TWO WEEKS, INTRAVENOUS; DAY 1
     Route: 042
  4. FLUOROURACIL [Suspect]
     Indication: COLORECTAL CANCER METASTATIC
     Dosage: 3200 MG/M2, EVERY TWO WEEKS,  CONTINUOUS IV INFUSION
     Route: 042

REACTIONS (1)
  - NEUTROPENIA [None]
